FAERS Safety Report 17806296 (Version 2)
Quarter: 2022Q2

REPORT INFORMATION
  Report Type: Spontaneous
  Country: FR (occurrence: FR)
  Receive Date: 20200520
  Receipt Date: 20220406
  Transmission Date: 20220721
  Serious: Yes (Hospitalization, Other)
  Sender: FDA-Public Use
  Company Number: FR-GLAXOSMITHKLINE-FR2019EME240147

PATIENT
  Age: 66 Year
  Sex: Male

DRUGS (50)
  1. SORIATANE [Suspect]
     Active Substance: ACITRETIN
     Indication: Psoriasis
     Dosage: 25 MG
     Route: 048
     Dates: start: 19911216, end: 200902
  2. SORIATANE [Suspect]
     Active Substance: ACITRETIN
     Dosage: UNK
     Route: 048
  3. METHOTREXATE [Suspect]
     Active Substance: METHOTREXATE
     Indication: Psoriasis
     Dosage: UNK
     Route: 048
     Dates: start: 20050725
  4. METHOTREXATE [Suspect]
     Active Substance: METHOTREXATE
     Dosage: UNK
     Route: 048
  5. COSENTYX [Suspect]
     Active Substance: SECUKINUMAB
     Indication: Psoriasis
     Dosage: 300 MG, CYC
     Route: 058
     Dates: start: 20171020, end: 20180628
  6. COSENTYX [Suspect]
     Active Substance: SECUKINUMAB
     Dosage: 300 MG
     Route: 058
     Dates: start: 20171020, end: 20180628
  7. COSENTYX [Suspect]
     Active Substance: SECUKINUMAB
     Dosage: 300 MG, WE
     Route: 058
     Dates: start: 20171020, end: 20171117
  8. ENBREL [Suspect]
     Active Substance: ETANERCEPT
     Indication: Psoriasis
     Dosage: 2X / WEEK UNTIL 05/02/2016 THEN 1X / WEEK (50 MG,1 IN 1 WK)
     Route: 058
     Dates: start: 20151105, end: 20160205
  9. ENBREL [Suspect]
     Active Substance: ETANERCEPT
     Dosage: 50 MG, WE
     Route: 058
     Dates: start: 20160205
  10. ENBREL [Suspect]
     Active Substance: ETANERCEPT
     Dosage: 100 MG, WE
     Route: 058
     Dates: start: 20160206, end: 20171002
  11. ENBREL [Suspect]
     Active Substance: ETANERCEPT
     Dosage: 100 UNK
     Route: 058
     Dates: start: 20151105, end: 20160205
  12. ENBREL [Suspect]
     Active Substance: ETANERCEPT
     Dosage: 7.142 MG, QD
     Route: 058
     Dates: start: 20110829, end: 20150205
  13. ENBREL [Suspect]
     Active Substance: ETANERCEPT
     Dosage: 100 MG, WE
     Route: 058
     Dates: start: 20110502, end: 20110828
  14. ENBREL [Suspect]
     Active Substance: ETANERCEPT
     Dosage: 50 MG, WE
     Route: 058
     Dates: start: 20091012, end: 200912
  15. ENBREL [Suspect]
     Active Substance: ETANERCEPT
     Dosage: 50 MG, WE
     Route: 058
     Dates: start: 20090511, end: 20090810
  16. ENBREL [Suspect]
     Active Substance: ETANERCEPT
     Dosage: 100 MG, WE
     Route: 058
     Dates: start: 20090211, end: 20090510
  17. HUMIRA [Suspect]
     Active Substance: ADALIMUMAB
     Indication: Psoriasis
     Dosage: 80 MG (ON D1)
     Route: 058
     Dates: start: 20150212, end: 20150504
  18. HUMIRA [Suspect]
     Active Substance: ADALIMUMAB
     Dosage: 40 MG
     Route: 058
     Dates: start: 20150212, end: 20150504
  19. HUMIRA [Suspect]
     Active Substance: ADALIMUMAB
     Dosage: UNK
     Route: 058
     Dates: end: 20150504
  20. HUMIRA [Suspect]
     Active Substance: ADALIMUMAB
     Dosage: UNK
     Route: 058
     Dates: start: 20150212, end: 20150212
  21. STELARA [Suspect]
     Active Substance: USTEKINUMAB
     Indication: Psoriasis
     Dosage: 45 MG ON D1, D28
     Route: 058
     Dates: start: 20150414, end: 20151102
  22. STELARA [Suspect]
     Active Substance: USTEKINUMAB
     Dosage: 45 MG, Z (EVERY 12 WEEKS)
     Route: 058
     Dates: start: 20150414, end: 20151102
  23. STELARA [Suspect]
     Active Substance: USTEKINUMAB
     Dosage: UNK
     Route: 058
     Dates: start: 20150611, end: 20151102
  24. STELARA [Suspect]
     Active Substance: USTEKINUMAB
     Dosage: UNK
     Route: 058
     Dates: start: 20150411, end: 20151102
  25. STELARA [Suspect]
     Active Substance: USTEKINUMAB
     Dosage: UNK
     Route: 058
     Dates: start: 20150514, end: 20150611
  26. STELARA [Suspect]
     Active Substance: USTEKINUMAB
     Dosage: UNK D1, D28
     Route: 058
     Dates: start: 20150514, end: 20150611
  27. STELARA [Suspect]
     Active Substance: USTEKINUMAB
     Dosage: UNK
  28. DAIVOBET [Concomitant]
     Active Substance: BETAMETHASONE DIPROPIONATE\CALCIPOTRIENE
     Indication: Product used for unknown indication
     Dosage: 1 DF, QD
  29. METFORMIN [Concomitant]
     Active Substance: METFORMIN HYDROCHLORIDE
     Indication: Product used for unknown indication
     Dosage: UNK
  30. GLIMEPIRIDE [Concomitant]
     Active Substance: GLIMEPIRIDE
     Indication: Product used for unknown indication
     Dosage: UNK
  31. DEXERYL (GLYCEROL + LIQUID PARAFFIN + PARAFFIN SOFT) [Concomitant]
     Indication: Product used for unknown indication
     Dosage: UNK
  32. AMOROLFINE HYDROCHLORIDE [Concomitant]
     Active Substance: AMOROLFINE HYDROCHLORIDE
     Indication: Product used for unknown indication
     Dosage: UNK
  33. VOGALENE [Concomitant]
     Active Substance: METOPIMAZINE
     Indication: Product used for unknown indication
     Dosage: UNK
  34. ENSTILAR [Concomitant]
     Active Substance: BETAMETHASONE DIPROPIONATE\CALCIPOTRIENE HYDRATE
     Indication: Product used for unknown indication
     Dosage: UNK
  35. LANTUS [Concomitant]
     Active Substance: INSULIN GLARGINE
     Indication: Product used for unknown indication
     Dosage: UNK
  36. DUPHALAC [Concomitant]
     Active Substance: LACTULOSE
     Indication: Product used for unknown indication
     Dosage: UNK
  37. DEXERYL (CHLORPHENAMINE MALEATE+DEXTROMETHORPHAN HBR+GUAIFENESIN+PHENY [Concomitant]
     Indication: Product used for unknown indication
     Dosage: UNK
     Route: 003
  38. NOVORAPID [Concomitant]
     Active Substance: INSULIN ASPART
     Indication: Product used for unknown indication
     Dosage: UNK
  39. PRIMPERAN [Concomitant]
     Active Substance: METOCLOPRAMIDE HYDROCHLORIDE
     Indication: Product used for unknown indication
     Dosage: UNK
  40. DESONIDE [Concomitant]
     Active Substance: DESONIDE
     Indication: Product used for unknown indication
     Dosage: UNK
  41. LAMISIL [Concomitant]
     Active Substance: TERBINAFINE HYDROCHLORIDE
     Indication: Product used for unknown indication
     Dosage: UNK
  42. PANTOPRAZOLE [Concomitant]
     Active Substance: PANTOPRAZOLE
     Indication: Product used for unknown indication
     Dosage: UNK
  43. SPIRONOLACTONE [Concomitant]
     Active Substance: SPIRONOLACTONE
     Indication: Product used for unknown indication
     Dosage: UNK
  44. BETAMETHASONE VALERATE [Concomitant]
     Active Substance: BETAMETHASONE VALERATE
     Indication: Skin lesion
     Dosage: UNK
  45. ACUPAN [Concomitant]
     Active Substance: NEFOPAM HYDROCHLORIDE
     Indication: Product used for unknown indication
     Dosage: UNK
  46. FUROSEMIDE [Concomitant]
     Active Substance: FUROSEMIDE
     Indication: Product used for unknown indication
     Dosage: UNK
  47. BIFONAZOLE\UREA [Concomitant]
     Active Substance: BIFONAZOLE\UREA
     Indication: Product used for unknown indication
     Dosage: UNK
  48. FOLIC ACID [Concomitant]
     Active Substance: FOLIC ACID
     Indication: Product used for unknown indication
     Dosage: UNK
  49. RIFAXIMIN [Concomitant]
     Active Substance: RIFAXIMIN
     Indication: Product used for unknown indication
     Dosage: UNK
  50. KAYEXALATE [Concomitant]
     Active Substance: SODIUM POLYSTYRENE SULFONATE
     Indication: Product used for unknown indication
     Dosage: UNK
     Dates: start: 20180812, end: 201808

REACTIONS (5)
  - Hepatocellular carcinoma [Not Recovered/Not Resolved]
  - Hepatic lesion [Recovering/Resolving]
  - Ascites [Recovering/Resolving]
  - Abdominal distension [Not Recovered/Not Resolved]
  - Abdominal pain [Not Recovered/Not Resolved]

NARRATIVE: CASE EVENT DATE: 20180531
